FAERS Safety Report 7081795-8 (Version None)
Quarter: 2010Q4

REPORT INFORMATION
  Report Type: 
  Country: None (occurrence: None)
  Receive Date: 20101103
  Receipt Date: 20101021
  Transmission Date: 20110411
  Serious: Yes (Life-Threatening, Hospitalization, Other)
  Sender: FDA-Public Use
  Company Number: BR-ELI_LILLY_AND_COMPANY-BR201007002738

PATIENT
  Age: 78 Year
  Sex: Male

DRUGS (4)
  1. ZYPREXA [Suspect]
     Indication: DEMENTIA
     Dosage: 2.5 MG, UNKNOWN
     Route: 065
  2. MEMANTINE [Concomitant]
     Indication: DEMENTIA
     Dosage: UNK, UNKNOWN
     Route: 065
  3. RIVASTIGMINE [Concomitant]
     Dosage: UNK, UNKNOWN
     Route: 065
  4. HALDOL [Concomitant]
     Indication: SEXUALLY INAPPROPRIATE BEHAVIOUR
     Dosage: UNK, DAILY (1/D)
     Route: 065

REACTIONS (5)
  - ANAEMIA [None]
  - BONE MARROW FAILURE [None]
  - OFF LABEL USE [None]
  - SINUSITIS [None]
  - THERAPEUTIC AGENT TOXICITY [None]
